FAERS Safety Report 21424100 (Version 2)
Quarter: 2023Q1

REPORT INFORMATION
  Report Type: Spontaneous
  Country: US (occurrence: US)
  Receive Date: 20221007
  Receipt Date: 20230123
  Transmission Date: 20230417
  Serious: No
  Sender: FDA-Public Use
  Company Number: US-AMGEN-USASP2022169666

PATIENT
  Age: 74 Year
  Sex: Female
  Weight: 46.621 kg

DRUGS (2)
  1. KYPROLIS [Suspect]
     Active Substance: CARFILZOMIB
     Indication: Plasma cell myeloma
     Dosage: 37 MILLIGRAM, D 1,2,8,9,15,16, Q28D
     Route: 065
     Dates: start: 20220516
  2. KYPROLIS [Suspect]
     Active Substance: CARFILZOMIB
     Dosage: 37 MILLIGRAM, D 1,2,8,9,15,16, Q28D
     Route: 065

REACTIONS (1)
  - Intercepted product preparation error [Unknown]

NARRATIVE: CASE EVENT DATE: 20220919
